FAERS Safety Report 21331108 (Version 2)
Quarter: 2022Q4

REPORT INFORMATION
  Report Type: Spontaneous
  Country: US (occurrence: US)
  Receive Date: 20220914
  Receipt Date: 20221007
  Transmission Date: 20230113
  Serious: Yes (Other)
  Sender: FDA-Public Use
  Company Number: US-BAYER-2022A126451

PATIENT
  Age: 80 Year
  Sex: Female

DRUGS (3)
  1. EYLEA [Suspect]
     Active Substance: AFLIBERCEPT
     Indication: Neovascular age-related macular degeneration
     Dosage: UNK; SOLUTION FOR INJECTION
  2. EYLEA [Suspect]
     Active Substance: AFLIBERCEPT
     Dosage: , BACK TO AFLIBERCEPT INJECTIONS OU EVERY 5 WEEKS, UNK; SOLUTION FOR INJECTION
  3. PREDNISOLONE [Concomitant]
     Active Substance: PREDNISOLONE
     Indication: Product used for unknown indication
     Dosage: UNK, 4 TIMES A DAY

REACTIONS (3)
  - Keratic precipitates [Unknown]
  - Iritis [Unknown]
  - Antinuclear antibody positive [Unknown]
